FAERS Safety Report 21964261 (Version 1)
Quarter: 2023Q1

REPORT INFORMATION
  Report Type: Spontaneous
  Country: CN (occurrence: CN)
  Receive Date: 20230207
  Receipt Date: 20230207
  Transmission Date: 20230417
  Serious: Yes (Hospitalization)
  Sender: FDA-Public Use
  Company Number: CN-BRAINTREE LABORATORIES, INC.-2023BTE00062

PATIENT
  Age: 63 Year
  Sex: Female

DRUGS (1)
  1. POLYETHYLENE GLYCOL [Suspect]
     Active Substance: POLYETHYLENE GLYCOL
     Indication: Colonoscopy
     Dosage: PREPARED WITH 4.5 L OF WATER

REACTIONS (3)
  - Hyponatraemic encephalopathy [Recovered/Resolved]
  - Seizure [Recovered/Resolved]
  - Loss of consciousness [Recovered/Resolved]
